FAERS Safety Report 9072835 (Version 1)
Quarter: 2013Q1

REPORT INFORMATION
  Report Type: Report from Study
  Country: US (occurrence: US)
  Receive Date: 20130129
  Receipt Date: 20130129
  Transmission Date: 20140127
  Serious: No
  Sender: FDA-Public Use
  Company Number: US-ABBOTT-12P-163-0929352-00

PATIENT
  Age: 27 Year
  Sex: Female
  Weight: 72.64 kg

DRUGS (5)
  1. HUMIRA 40 MG/0.8 ML PEN [Suspect]
     Indication: CROHN^S DISEASE
     Dosage: 160MG LOADING DOSE
     Dates: start: 20120409, end: 20120409
  2. PREDNISONE [Concomitant]
     Indication: PRODUCT USED FOR UNKNOWN INDICATION
  3. PRILOSEC [Concomitant]
     Indication: PRODUCT USED FOR UNKNOWN INDICATION
  4. ASACOL [Concomitant]
     Indication: PRODUCT USED FOR UNKNOWN INDICATION
  5. MULTIVITAMIN [Concomitant]
     Indication: PRODUCT USED FOR UNKNOWN INDICATION

REACTIONS (6)
  - Flushing [Recovered/Resolved]
  - Nausea [Recovered/Resolved]
  - Infected bites [Recovering/Resolving]
  - Neck pain [Recovering/Resolving]
  - Musculoskeletal pain [Recovering/Resolving]
  - Lymph gland infection [Recovering/Resolving]
